FAERS Safety Report 7770333-X (Version None)
Quarter: 2011Q3

REPORT INFORMATION
  Report Type: 
  Country: None (occurrence: None)
  Receive Date: 20110922
  Receipt Date: 20110107
  Transmission Date: 20111222
  Serious: No
  Sender: FDA-Public Use
  Company Number: US-ASTRAZENECA-2011SE01511

PATIENT
  Age: 46 Year
  Sex: Male
  Weight: 90.7 kg

DRUGS (4)
  1. SEROQUEL [Suspect]
     Indication: BIPOLAR DISORDER
     Route: 048
  2. SEROQUEL [Suspect]
     Route: 048
     Dates: start: 20101101
  3. LITHIUM CARBONATE [Concomitant]
     Indication: BIPOLAR DISORDER
  4. ABILIFY [Concomitant]
     Indication: BIPOLAR DISORDER

REACTIONS (3)
  - DRUG PRESCRIBING ERROR [None]
  - MANIA [None]
  - DRUG INEFFECTIVE [None]
